FAERS Safety Report 8932456 (Version 1)
Quarter: 2012Q4

REPORT INFORMATION
  Report Type: 
  Country: IE (occurrence: IE)
  Receive Date: 20121128
  Receipt Date: 20121128
  Transmission Date: 20130627
  Serious: Yes (Hospitalization)
  Sender: FDA-Public Use
  Company Number: IE-ELI_LILLY_AND_COMPANY-IE201211002020

PATIENT
  Age: 74 None
  Sex: Male

DRUGS (21)
  1. FORSTEO [Suspect]
     Indication: OSTEOPOROSIS
     Dosage: 20 ug, qd
     Route: 058
     Dates: start: 20121016, end: 201211
  2. FORSTEO [Suspect]
     Dosage: 20 ug, qd
     Route: 058
     Dates: start: 201211
  3. INNOHEP [Concomitant]
  4. MYCOSTATIN [Concomitant]
  5. VERSATIS [Concomitant]
  6. NEXIUM [Concomitant]
  7. STEMETIL [Concomitant]
  8. AZOPT [Concomitant]
  9. MOTILIUM [Concomitant]
  10. LEXAPRO [Concomitant]
  11. BURINEX [Concomitant]
  12. ALDACTONE [Concomitant]
  13. MOGADON [Concomitant]
  14. DELTACORTRIL [Concomitant]
  15. FLIXOTIDE [Concomitant]
  16. EXPUTEX [Concomitant]
  17. ASPIRIN [Concomitant]
  18. VITAMIN D3 [Concomitant]
  19. COMBIVENT [Concomitant]
  20. PARACETAMOL [Concomitant]
  21. SPIRIVA [Concomitant]

REACTIONS (5)
  - Chronic obstructive pulmonary disease [Recovering/Resolving]
  - Headache [Recovered/Resolved]
  - Pain in extremity [Recovered/Resolved]
  - Pain [Recovered/Resolved]
  - Intentional drug misuse [Unknown]
